FAERS Safety Report 9529160 (Version 2)
Quarter: 2013Q3

REPORT INFORMATION
  Report Type: Not Available
  Country: US (occurrence: US)
  Receive Date: 20130916
  Receipt Date: 20130916
  Transmission Date: 20140515
  Serious: Yes (Hospitalization)
  Sender: FDA-Public Use
  Company Number: US-LUNDBECK-DKLU1090125

PATIENT
  Age: 19 Year
  Sex: Male

DRUGS (2)
  1. ONFI [Suspect]
     Indication: CONVULSION
     Dates: start: 20130401
  2. ATIVAN [Concomitant]
     Indication: CONVULSION

REACTIONS (2)
  - Aggression [Unknown]
  - Agitation [Unknown]
